FAERS Safety Report 10328561 (Version 1)
Quarter: 2014Q3

REPORT INFORMATION
  Report Type: Spontaneous
  Country: FR (occurrence: None)
  Receive Date: 20140717
  Receipt Date: 20140717
  Transmission Date: 20150326
  Serious: Yes (Hospitalization)
  Sender: FDA-Public Use
  Company Number: 2432467

PATIENT
  Age: 53 Year
  Sex: Female

DRUGS (7)
  1. ACTISKENAN [Concomitant]
     Active Substance: MORPHINE SULFATE
  2. ALIMTA [Suspect]
     Active Substance: PEMETREXED DISODIUM
     Indication: BRONCHIAL CARCINOMA
     Route: 042
     Dates: start: 20140612, end: 20140612
  3. LYRICA [Concomitant]
     Active Substance: PREGABALIN
  4. THIOCOLCHICOSIDE [Concomitant]
     Active Substance: THIOCOLCHICOSIDE
  5. CARBOPLATIN. [Suspect]
     Active Substance: CARBOPLATIN
     Indication: BRONCHIAL CARCINOMA
     Route: 042
     Dates: start: 20140612, end: 20140612
  6. SPECIAFOLDINE [Concomitant]
     Active Substance: FOLIC ACID
  7. SKENAN [Concomitant]
     Active Substance: MORPHINE SULFATE

REACTIONS (3)
  - Gastrointestinal toxicity [None]
  - Diarrhoea haemorrhagic [None]
  - Diarrhoea [None]

NARRATIVE: CASE EVENT DATE: 20140612
